FAERS Safety Report 5283708-8 (Version None)
Quarter: 2007Q2

REPORT INFORMATION
  Report Type: 
  Country: None (occurrence: None)
  Receive Date: 20070402
  Receipt Date: 20070312
  Transmission Date: 20071010
  Serious: Yes (Other)
  Sender: FDA-Public Use
  Company Number: US-SANOFI-SYNTHELABO-A03200702133

PATIENT
  Sex: Female

DRUGS (6)
  1. PRILOSEC [Concomitant]
     Route: 065
  2. EVISTA [Concomitant]
     Route: 065
  3. ATENOLOL [Concomitant]
     Route: 065
  4. NORVASC [Concomitant]
     Route: 065
  5. DIOVAN [Concomitant]
     Route: 065
  6. AMBIEN [Suspect]
     Indication: INSOMNIA
     Route: 048
     Dates: start: 20060913, end: 20060913

REACTIONS (9)
  - CONTUSION [None]
  - EXCORIATION [None]
  - FACIAL BONES FRACTURE [None]
  - FALL [None]
  - JOINT INJURY [None]
  - MULTIPLE INJURIES [None]
  - MUSCULOSKELETAL STIFFNESS [None]
  - SLEEP WALKING [None]
  - VISION BLURRED [None]
